FAERS Safety Report 5509137-7 (Version None)
Quarter: 2007Q4

REPORT INFORMATION
  Report Type: 
  Country: None (occurrence: None)
  Receive Date: 20071107
  Receipt Date: 20071030
  Transmission Date: 20080405
  Serious: Yes (Other)
  Sender: FDA-Public Use
  Company Number: PHEH2007US14224

PATIENT
  Sex: Female

DRUGS (1)
  1. ZOMETA [Suspect]
     Indication: OSTEOPOROSIS
     Dosage: 4 MG, UNK
     Route: 042

REACTIONS (4)
  - ATRIAL FIBRILLATION [None]
  - DIZZINESS [None]
  - HEART RATE INCREASED [None]
  - TACHYARRHYTHMIA [None]
